FAERS Safety Report 5235427-1 (Version None)
Quarter: 2007Q1

REPORT INFORMATION
  Report Type: 
  Country: None (occurrence: None)
  Receive Date: 20070212
  Receipt Date: 20070207
  Transmission Date: 20070707
  Serious: Yes (Other)
  Sender: FDA-Public Use
  Company Number: US-BRISTOL-MYERS SQUIBB COMPANY-13641246

PATIENT
  Age: 51 Year
  Sex: Female
  Weight: 87 kg

DRUGS (2)
  1. DEFINITY [Suspect]
     Indication: STRESS ECHOCARDIOGRAM
     Dosage: DEFINITY 3CC (1.3CC OF DEFINITY DILUTED IN 8.7CC OF NORMAL SALINE)
     Route: 042
     Dates: start: 20070112, end: 20070112
  2. ZYRTEC [Concomitant]

REACTIONS (1)
  - ANAPHYLACTIC REACTION [None]
